FAERS Safety Report 6963903-X (Version None)
Quarter: 2010Q3

REPORT INFORMATION
  Report Type: 
  Country: None (occurrence: None)
  Receive Date: 20100831
  Receipt Date: 20100816
  Transmission Date: 20110219
  Serious: Yes (Other)
  Sender: FDA-Public Use
  Company Number: 010713

PATIENT

DRUGS (6)
  1. BUSULFEX [Suspect]
     Indication: STEM CELL TRANSPLANT
     Dosage: 3.2 MG/KG, DAILY DOSE, INTRAVENOUS
     Route: 042
  2. FLUDARABINE PHOSPHATE [Concomitant]
  3. CAMPATH [Concomitant]
  4. CYCLOSPORINE [Concomitant]
  5. GRANULOCYTE COLONY STIMULATING FACTOR (GRANULOCY COLONY STIMULATING FA [Concomitant]
  6. PREDNISOLONE [Concomitant]

REACTIONS (6)
  - ACUTE GRAFT VERSUS HOST DISEASE [None]
  - ACUTE MYELOID LEUKAEMIA [None]
  - CHRONIC GRAFT VERSUS HOST DISEASE [None]
  - CYTOMEGALOVIRUS INFECTION [None]
  - MYELOPROLIFERATIVE DISORDER [None]
  - REFRACTORY ANAEMIA WITH AN EXCESS OF BLASTS [None]
